FAERS Safety Report 10210853 (Version 1)
Quarter: 2014Q2

REPORT INFORMATION
  Report Type: Spontaneous
  Country: US (occurrence: US)
  Receive Date: 20140602
  Receipt Date: 20140602
  Transmission Date: 20141212
  Serious: No
  Sender: FDA-Public Use
  Company Number: US-GILEAD-2014-0103836

PATIENT
  Sex: Female

DRUGS (3)
  1. LETAIRIS [Suspect]
     Indication: PRODUCT USED FOR UNKNOWN INDICATION
     Dosage: 5 MG, QD
     Route: 065
     Dates: start: 20131003
  2. TYVASO [Concomitant]
  3. ADCIRCA [Concomitant]

REACTIONS (4)
  - Somnolence [Unknown]
  - Cough [Unknown]
  - Oxygen saturation decreased [Unknown]
  - Dizziness [Unknown]
